FAERS Safety Report 11599750 (Version 1)
Quarter: 2015Q3

REPORT INFORMATION
  Report Type: Spontaneous
  Country: US (occurrence: US)
  Receive Date: 20150916
  Receipt Date: 20150916
  Transmission Date: 20151125
  Serious: No
  Sender: FDA-Public Use
  Company Number: US-ELI_LILLY_AND_COMPANY-US200708003579

PATIENT
  Age: 73 Year
  Sex: Female

DRUGS (5)
  1. CALTRATE WITH VITAMIN D [Concomitant]
     Active Substance: CALCIUM CARBONATE\CHOLECALCIFEROL
  2. OXYGEN. [Concomitant]
     Active Substance: OXYGEN
  3. FORTEO [Suspect]
     Active Substance: TERIPARATIDE
     Dates: start: 2007
  4. FORTEO [Suspect]
     Active Substance: TERIPARATIDE
     Indication: OSTEOPOROSIS
     Dosage: UNK, UNK
     Dates: start: 2002, end: 2004
  5. MIACALCIN [Concomitant]
     Active Substance: CALCITONIN SALMON

REACTIONS (2)
  - Bone density decreased [Not Recovered/Not Resolved]
  - Bronchitis [Not Recovered/Not Resolved]

NARRATIVE: CASE EVENT DATE: 200706
